FAERS Safety Report 20082199 (Version 1)
Quarter: 2021Q4

REPORT INFORMATION
  Report Type: Spontaneous
  Country: JP (occurrence: JP)
  Receive Date: 20211117
  Receipt Date: 20211117
  Transmission Date: 20220303
  Serious: Yes (Other)
  Sender: FDA-Public Use
  Company Number: JP-OTSUKA-2021_032042

PATIENT
  Age: 31 Year
  Sex: Female

DRUGS (8)
  1. ABILIFY [Suspect]
     Active Substance: ARIPIPRAZOLE
     Indication: Affective disorder
     Dosage: 400 MG PER 4 WEEKS
     Route: 030
     Dates: start: 20151013, end: 20151013
  2. ABILIFY [Suspect]
     Active Substance: ARIPIPRAZOLE
     Indication: Product used for unknown indication
     Dosage: 1 TABLET, QD
     Route: 048
     Dates: start: 20151013, end: 20151027
  3. ABILIFY [Suspect]
     Active Substance: ARIPIPRAZOLE
     Dosage: 2 TABLETS, QD
  4. ABILIFY [Suspect]
     Active Substance: ARIPIPRAZOLE
     Dosage: 1 TABLET, QD
     Route: 048
     Dates: start: 20151029, end: 20151110
  5. ABILIFY [Suspect]
     Active Substance: ARIPIPRAZOLE
     Dosage: 2 TABLETS, QD
     Route: 048
     Dates: start: 20151111
  6. ZOPICLONE [Concomitant]
     Active Substance: ZOPICLONE
     Indication: Product used for unknown indication
     Dosage: 1 TABLET (10MG), QD
     Route: 048
     Dates: start: 20151013
  7. CLONAZEPAM [Concomitant]
     Active Substance: CLONAZEPAM
     Indication: Product used for unknown indication
     Dosage: 1 TABLET (1MG), QD
     Route: 048
     Dates: start: 20151013
  8. BROTIZOLAM [Concomitant]
     Active Substance: BROTIZOLAM
     Indication: Product used for unknown indication
     Dosage: 1 TABLET (0.25MG), QD
     Route: 048
     Dates: start: 20151013

REACTIONS (1)
  - Psychiatric symptom [Recovered/Resolved]

NARRATIVE: CASE EVENT DATE: 20151027
